FAERS Safety Report 9195270 (Version 1)
Quarter: 2013Q1

REPORT INFORMATION
  Report Type: Spontaneous
  Country: US (occurrence: US)
  Receive Date: 20130328
  Receipt Date: 20130328
  Transmission Date: 20140127
  Serious: No
  Sender: FDA-Public Use
  Company Number: US-ALLERGAN-1205300US

PATIENT
  Age: 78 Year
  Sex: Male

DRUGS (3)
  1. LUMIGAN [Suspect]
     Indication: INTRAOCULAR PRESSURE TEST
     Dosage: 2 GTT, QHS
     Route: 047
  2. BETOPTIC [Concomitant]
     Indication: INTRAOCULAR PRESSURE TEST
     Dosage: 2 GTT, BID
     Route: 047
  3. SYSTANE [Concomitant]
     Indication: DRY EYE
     Dosage: UNK
     Route: 047

REACTIONS (4)
  - Rhinorrhoea [Not Recovered/Not Resolved]
  - Dry throat [Not Recovered/Not Resolved]
  - Growth of eyelashes [Not Recovered/Not Resolved]
  - Dry eye [Not Recovered/Not Resolved]
